FAERS Safety Report 4588483-8 (Version None)
Quarter: 2005Q1

REPORT INFORMATION
  Report Type: 
  Country: None (occurrence: None)
  Receive Date: 20050215
  Receipt Date: 20050215
  Transmission Date: 20050727
  Serious: Yes (Other)
  Sender: FDA-Public Use
  Company Number: None

PATIENT
  Age: 30 Year
  Sex: Female
  Weight: 53.0709 kg

DRUGS (1)
  1. NORTRIPTYLINE HCL [Suspect]
     Indication: MIGRAINE
     Dosage: 75 MG.   ONCE AT BED   ORAL
     Route: 048
     Dates: start: 20030501, end: 20051114

REACTIONS (3)
  - CONDUCTION DISORDER [None]
  - NERVOUS SYSTEM DISORDER [None]
  - PAIN [None]
